FAERS Safety Report 4380236-9 (Version None)
Quarter: 2004Q2

REPORT INFORMATION
  Report Type: 
  Country: None (occurrence: None)
  Receive Date: 20040616
  Receipt Date: 20040616
  Transmission Date: 20050107
  Serious: Yes (Life-Threatening, Hospitalization)
  Sender: FDA-Public Use
  Company Number: None

PATIENT
  Sex: Male
  Weight: 86.6 kg

DRUGS (5)
  1. IRINOTECA (40MG/M2) PFIZER [Suspect]
     Indication: GLIOBLASTOMA
     Dosage: 80 MG, IV Q21DAYS
     Route: 042
     Dates: start: 20040512
  2. TEMODAR [Suspect]
     Indication: GLIOBLASTOMA
     Dosage: 400MG POQ 21 DAYS
     Dates: start: 20040512
  3. DECADRON [Concomitant]
  4. PROTONIX [Concomitant]
  5. KEPPRA [Concomitant]

REACTIONS (3)
  - GANGRENE [None]
  - HEPARIN-INDUCED THROMBOCYTOPENIA [None]
  - PULMONARY EMBOLISM [None]
